FAERS Safety Report 7649366-X (Version None)
Quarter: 2011Q3

REPORT INFORMATION
  Report Type: 
  Country: None (occurrence: None)
  Receive Date: 20110721
  Receipt Date: 20110718
  Transmission Date: 20111222
  Serious: Yes (Hospitalization)
  Sender: FDA-Public Use
  Company Number: 2011029197

PATIENT
  Sex: Female
  Weight: 66.2252 kg

DRUGS (1)
  1. HIZENTRA [Suspect]
     Indication: HYPOGAMMAGLOBULINAEMIA
     Dosage: 7.5 G, 0.33 ML/MIN OVER 75 MIN, SUBCUTANEOUS
     Route: 058
     Dates: start: 20110411

REACTIONS (4)
  - ABDOMINAL DISTENSION [None]
  - ABDOMINAL PAIN [None]
  - NAUSEA [None]
  - VOMITING [None]
